FAERS Safety Report 6678952-9 (Version None)
Quarter: 2010Q2

REPORT INFORMATION
  Report Type: 
  Country: None (occurrence: None)
  Receive Date: 20100413
  Receipt Date: 20100405
  Transmission Date: 20101027
  Serious: Yes (Other)
  Sender: FDA-Public Use
  Company Number: US-BAYER-201013248NA

PATIENT
  Age: 30 Year
  Sex: Female
  Weight: 67 kg

DRUGS (2)
  1. MIRENA [Suspect]
     Indication: CONTRACEPTION
     Route: 015
     Dates: start: 20091013, end: 20091118
  2. MIRENA [Suspect]
     Route: 015

REACTIONS (3)
  - MEDICAL DEVICE COMPLICATION [None]
  - PAIN [None]
  - UTERINE PERFORATION [None]
